FAERS Safety Report 10569631 (Version 6)
Quarter: 2017Q1

REPORT INFORMATION
  Report Type: Report from Study
  Country: US (occurrence: US)
  Receive Date: 20141107
  Receipt Date: 20170123
  Transmission Date: 20170428
  Serious: Yes (Death, Other)
  Sender: FDA-Public Use
  Company Number: US-ROCHE-1485943

PATIENT

DRUGS (10)
  1. SOFOSBUVIR [Suspect]
     Active Substance: SOFOSBUVIR
     Indication: HEPATITIS C VIRUS TEST POSITIVE
     Route: 048
  2. SIROLIMUS. [Suspect]
     Active Substance: SIROLIMUS
     Indication: PROPHYLAXIS AGAINST TRANSPLANT REJECTION
     Route: 065
  3. TACROLIMUS. [Suspect]
     Active Substance: TACROLIMUS
     Indication: PROPHYLAXIS AGAINST TRANSPLANT REJECTION
     Route: 065
  4. EVEROLIMUS [Suspect]
     Active Substance: EVEROLIMUS
     Indication: PROPHYLAXIS AGAINST TRANSPLANT REJECTION
     Route: 065
  5. MYCOPHENOLIC ACID. [Suspect]
     Active Substance: MYCOPHENOLIC ACID
     Indication: PROPHYLAXIS AGAINST TRANSPLANT REJECTION
     Route: 065
  6. RIBAVIRIN. [Suspect]
     Active Substance: RIBAVIRIN
     Indication: HEPATITIS C VIRUS TEST POSITIVE
     Dosage: ADMINISTERED ACCORDING TO BODY WEIGHT ({75 KG, 1000 MG/DAY IN 2 DIVIDED DOSES; }/=75 KG, 1200 MG/DAY
     Route: 048
  7. SIMEPREVIR [Suspect]
     Active Substance: SIMEPREVIR
     Indication: HEPATITIS C VIRUS TEST POSITIVE
     Route: 048
  8. CYCLOSPORINE. [Suspect]
     Active Substance: CYCLOSPORINE
     Indication: PROPHYLAXIS AGAINST TRANSPLANT REJECTION
     Route: 065
  9. PEG-INTERFERON ALFA 2A [Suspect]
     Active Substance: PEGINTERFERON ALFA-2A
     Indication: HEPATITIS C VIRUS TEST POSITIVE
     Route: 065
  10. MYCOPHENOLATE MOFETIL. [Suspect]
     Active Substance: MYCOPHENOLATE MOFETIL
     Indication: PROPHYLAXIS AGAINST TRANSPLANT REJECTION
     Route: 065

REACTIONS (46)
  - Hepatic failure [Unknown]
  - Pneumonia [Unknown]
  - Back pain [Unknown]
  - Cardiac arrest [Fatal]
  - Abdominal pain [Unknown]
  - Gastroenteritis [Unknown]
  - Fluid overload [Unknown]
  - Stent placement [Unknown]
  - Influenza [Unknown]
  - Drug ineffective [Unknown]
  - Asthenia [Unknown]
  - Generalised oedema [Unknown]
  - Anaemia [Unknown]
  - Headache [Unknown]
  - Gastrointestinal haemorrhage [Unknown]
  - Fall [Unknown]
  - Nausea [Unknown]
  - Muscle spasms [Unknown]
  - Cough [Unknown]
  - Infection [Unknown]
  - Infestation [Unknown]
  - Arrhythmia [Unknown]
  - Sepsis [Unknown]
  - Hepatic encephalopathy [Unknown]
  - Dyspnoea [Unknown]
  - Fatigue [Unknown]
  - Influenza like illness [Unknown]
  - Pneumonitis [Unknown]
  - Acute kidney injury [Unknown]
  - Urinary tract infection [Unknown]
  - Pruritus [Unknown]
  - Insomnia [Unknown]
  - Irritability [Unknown]
  - Diarrhoea [Unknown]
  - Multiple organ dysfunction syndrome [Fatal]
  - Chest discomfort [Unknown]
  - Upper respiratory tract infection [Unknown]
  - Hypovolaemia [Unknown]
  - Chronic obstructive pulmonary disease [Unknown]
  - Rash [Unknown]
  - Dizziness [Unknown]
  - Decreased appetite [Unknown]
  - Chest pain [Unknown]
  - Peritonitis bacterial [Unknown]
  - Depression [Unknown]
  - Photosensitivity reaction [Unknown]
